FAERS Safety Report 7361387-3 (Version None)
Quarter: 2011Q1

REPORT INFORMATION
  Report Type: 
  Country: None (occurrence: None)
  Receive Date: 20110318
  Receipt Date: 20110313
  Transmission Date: 20110831
  Serious: Yes (Life-Threatening)
  Sender: FDA-Public Use
  Company Number: JP-ELI_LILLY_AND_COMPANY-JP201103005298

PATIENT
  Sex: Male
  Weight: 74.5 kg

DRUGS (1)
  1. PRASUGREL HYDROCHLORIDE [Suspect]
     Indication: ACUTE CORONARY SYNDROME
     Dates: start: 20110303

REACTIONS (1)
  - THROMBOSIS IN DEVICE [None]
